FAERS Safety Report 8276917-7 (Version None)
Quarter: 2012Q2

REPORT INFORMATION
  Report Type: 
  Country: None (occurrence: None)
  Receive Date: 20120412
  Receipt Date: 20120409
  Transmission Date: 20120825
  Serious: Yes (Other)
  Sender: FDA-Public Use
  Company Number: US-PFIZER INC-2012088711

PATIENT
  Sex: Male
  Weight: 99.8 kg

DRUGS (2)
  1. PRISTIQ [Suspect]
     Indication: MAJOR DEPRESSION
     Dosage: 100 MG, 1X/DAY
     Route: 048
     Dates: start: 20000101, end: 20000101
  2. GABAPENTIN [Concomitant]
     Dosage: 800 MG, 4X/DAY

REACTIONS (1)
  - BACK DISORDER [None]
